FAERS Safety Report 7428967-8 (Version None)
Quarter: 2011Q2

REPORT INFORMATION
  Report Type: 
  Country: None (occurrence: None)
  Receive Date: 20110412
  Receipt Date: 20110330
  Transmission Date: 20111010
  Serious: Yes (Hospitalization)
  Sender: FDA-Public Use
  Company Number: VAL_00553_2011

PATIENT
  Age: 52 Year
  Sex: Male

DRUGS (6)
  1. ESIDREX (ESIDREX-HYDROCHLOROTHIAZIDE) (NOT SPECIFIED) [Suspect]
     Indication: HYPERTENSION
     Dosage: (25 UG ORAL)
     Route: 048
     Dates: start: 20101201, end: 20101214
  2. ASPIRIN [Concomitant]
  3. VANDRAL [Concomitant]
  4. ROCALTROL [Suspect]
     Indication: HYPOPARATHYROIDISM
     Dosage: (0.5 UG BID ORAL)
     Route: 048
     Dates: start: 20101201, end: 20101214
  5. MASTICAL (MASTICAL-CALCIUM CARBONATE) (NOT SPECIFIED) [Suspect]
     Indication: HYPOPARATHYROIDISM
     Dosage: (1.5 G TID ORAL)
     Route: 048
     Dates: start: 20101201, end: 20101214
  6. OMEPRAZOLE [Concomitant]

REACTIONS (4)
  - VOMITING [None]
  - RENAL FAILURE ACUTE [None]
  - DRUG INTERACTION [None]
  - HYPERCALCAEMIA [None]
